FAERS Safety Report 4644689-0 (Version None)
Quarter: 2005Q2

REPORT INFORMATION
  Report Type: 
  Country: None (occurrence: None)
  Receive Date: 20050426
  Receipt Date: 20050421
  Transmission Date: 20051028
  Serious: Yes (Life-Threatening, Hospitalization, Other)
  Sender: FDA-Public Use
  Company Number: PHBS2005IN05735

PATIENT
  Age: 70 Year
  Sex: Female

DRUGS (1)
  1. VOVERAN [Suspect]
     Indication: PERIARTHRITIS
     Dosage: 75 MG, ONCE/SINGLE
     Route: 030

REACTIONS (6)
  - DIZZINESS [None]
  - ECG SIGNS OF MYOCARDIAL ISCHAEMIA [None]
  - HYPOTENSION [None]
  - PRURITUS [None]
  - PULSE ABSENT [None]
  - RASH [None]
